FAERS Safety Report 25881468 (Version 1)
Quarter: 2025Q4

REPORT INFORMATION
  Report Type: Spontaneous
  Country: US (occurrence: US)
  Receive Date: 20251005
  Receipt Date: 20251005
  Transmission Date: 20260119
  Serious: No
  Sender: Kenvue
  Company Number: US-KENVUE-20250811202

PATIENT
  Sex: Female
  Weight: 50.802 kg

DRUGS (5)
  1. TYLENOL [Interacting]
     Active Substance: ACETAMINOPHEN
     Indication: Product used for unknown indication
     Route: 065
  2. WARFARIN [Interacting]
     Active Substance: WARFARIN
     Indication: Product used for unknown indication
     Route: 065
  3. UPTRAVI [Concomitant]
     Active Substance: SELEXIPAG
     Indication: Pulmonary arterial hypertension
     Dosage: 400 MICROGRAM, TWICE A DAY UPTRAVI 400MCG ORALLY
     Route: 048
  4. OPSUMIT [Concomitant]
     Active Substance: MACITENTAN
     Indication: Product used for unknown indication
     Route: 065
  5. TADALAFIL [Concomitant]
     Active Substance: TADALAFIL
     Indication: Product used for unknown indication
     Route: 065

REACTIONS (2)
  - International normalised ratio abnormal [Unknown]
  - Drug interaction [Unknown]
